FAERS Safety Report 8424513 (Version 6)
Quarter: 2012Q4

REPORT INFORMATION
  Report Type: 
  Country: JP (occurrence: JP)
  Receive Date: 20120224
  Receipt Date: 20120925
  Transmission Date: 20130627
  Serious: Yes (Death, Other)
  Sender: FDA-Public Use
  Company Number: JP-PFIZER INC-2012048507

PATIENT
  Age: 65 Year
  Sex: Male
  Weight: 68 kg

DRUGS (46)
  1. CAMPTO [Suspect]
     Indication: SMALL CELL LUNG CANCER STAGE UNSPECIFIED
     Dosage: 58.5 mg/m2, UNK
     Route: 041
     Dates: start: 20110302, end: 20110302
  2. CAMPTO [Suspect]
     Dosage: 100 mg, 1x/day
     Route: 041
     Dates: start: 20110309, end: 20110309
  3. ETOPOSIDE [Suspect]
     Indication: SMALL CELL LUNG CANCER STAGE UNSPECIFIED
     Dosage: 117 mg/m2, 1x/day
     Route: 041
     Dates: start: 20110323, end: 20110325
  4. DECADRON [Concomitant]
     Indication: PREMEDICATION
     Dosage: 6.6 mg, UNK
     Route: 041
     Dates: start: 20110302, end: 20110325
  5. KYTRIL [Concomitant]
     Indication: PREMEDICATION
     Dosage: 3 mg, UNK
     Route: 041
     Dates: start: 20110302, end: 20110309
  6. LOXONIN [Concomitant]
     Indication: CANCER PAIN
     Dosage: UNK
     Route: 048
     Dates: start: 20110301, end: 20110322
  7. CYTOTEC [Concomitant]
     Indication: PROPHYLAXIS AGAINST GASTROINTESTINAL ULCER
     Dosage: UNK
     Route: 048
     Dates: start: 20110301, end: 20110322
  8. URSO [Concomitant]
     Indication: LIVER DISORDER
     Dosage: 100 mg, 3x/day
     Route: 048
     Dates: start: 20110302, end: 20110315
  9. FOY [Concomitant]
     Indication: DISSEMINATED INTRAVASCULAR COAGULATION
     Dosage: 1000 mg, UNK
     Route: 041
     Dates: start: 20110307, end: 20110309
  10. JUSO [Concomitant]
     Dosage: UNK
     Dates: start: 20110302, end: 20110315
  11. PLATELETS, HUMAN BLOOD [Concomitant]
     Dosage: UNK
     Dates: start: 20110305, end: 20110402
  12. PLATELETS, HUMAN BLOOD [Concomitant]
     Dosage: UNK
  13. GRAN [Concomitant]
     Dosage: UNK
     Dates: start: 20110307, end: 20110330
  14. ORGARAN [Concomitant]
     Dosage: UNK
     Dates: start: 20110310, end: 20110326
  15. FUTHAN [Concomitant]
     Dosage: UNK
     Dates: start: 20110310, end: 20110315
  16. TAKEPRON [Concomitant]
     Dosage: UNK
     Dates: start: 20110316, end: 20110322
  17. RED BLOOD CELLS, CONCENTRATED [Concomitant]
     Dosage: UNK
     Dates: start: 20110316, end: 20110404
  18. TRAMAL [Concomitant]
     Dosage: UNK
     Dates: start: 20110320, end: 20110329
  19. SOLU-MEDROL [Concomitant]
     Dosage: UNK
     Dates: start: 20110322, end: 20110322
  20. TAKEPRON [Concomitant]
     Dosage: UNK
     Dates: start: 20110323, end: 20110329
  21. DORMICUM FOR INJECTION [Concomitant]
     Dosage: UNK
     Dates: start: 20110325, end: 20110326
  22. TAKEPRON [Concomitant]
     Dosage: UNK
     Dates: start: 20110325, end: 20110404
  23. LIDOCAINE [Concomitant]
     Dosage: UNK
     Dates: start: 20110326, end: 20110326
  24. RECOMODULIN [Concomitant]
     Dosage: UNK
     Dates: start: 20110326, end: 20110401
  25. XYLOCAINE HYDROCHLORIDE [Concomitant]
     Dosage: UNK
     Dates: start: 20110326, end: 20110326
  26. MEROPEN [Concomitant]
     Dosage: UNK
     Dates: start: 20110326, end: 20110401
  27. NORADRENALINE [Concomitant]
     Dosage: UNK
     Dates: start: 20110326, end: 20110326
  28. MEYLON [Concomitant]
     Dosage: UNK
     Dates: start: 20110326, end: 20110326
  29. ALBUMINAR [Concomitant]
     Dosage: UNK
     Dates: start: 20110326, end: 20110404
  30. ADRENALINE [Concomitant]
     Dosage: UNK
     Dates: start: 20110326, end: 20110326
  31. CRAVIT [Concomitant]
     Dosage: UNK
     Dates: start: 20110326, end: 20110403
  32. ZYVOX [Concomitant]
     Dosage: UNK
     Dates: start: 20110326, end: 20110401
  33. DOPAMINE HYDROCHLORIDE [Concomitant]
     Dosage: UNK
     Dates: start: 20110326, end: 20110326
  34. EPHEDRIN [Concomitant]
     Dosage: UNK
     Dates: start: 20110326, end: 20110326
  35. METILON [Concomitant]
     Dosage: UNK
     Dates: start: 20110327, end: 20110327
  36. PLASMA, FRESH FROZEN [Concomitant]
     Dosage: UNK
     Dates: start: 20110328, end: 20110403
  37. LASIX [Concomitant]
     Dosage: UNK
     Dates: start: 20110329, end: 20110329
  38. PRECEDEX [Concomitant]
     Dosage: UNK
     Dates: start: 20110329, end: 20110329
  39. NEUTROGIN [Concomitant]
     Dosage: UNK
     Dates: start: 20110331, end: 20110404
  40. CEFAMEZIN ALPHA [Concomitant]
     Dosage: UNK
     Dates: start: 20110401, end: 20110404
  41. FUNGUARD [Concomitant]
     Dosage: UNK
     Dates: start: 20110401, end: 20110404
  42. DIPRIVAN [Concomitant]
     Dosage: UNK
     Dates: start: 20110402, end: 20110402
  43. VANCOMYCIN [Concomitant]
     Dosage: UNK
     Dates: start: 20110403, end: 20110404
  44. PRODIF [Concomitant]
     Dosage: UNK
     Dates: start: 20110404, end: 20110404
  45. AMBISOME [Concomitant]
     Dosage: UNK
     Dates: start: 20110404, end: 20110404
  46. MAXIPIME [Concomitant]
     Dosage: UNK
     Dates: start: 20110314, end: 20110326

REACTIONS (6)
  - Pulmonary mycosis [Fatal]
  - Neutropenia [Fatal]
  - Pulmonary oedema [Fatal]
  - Pneumonia bacterial [Fatal]
  - Leukopenia [Fatal]
  - Haemoglobin decreased [Not Recovered/Not Resolved]
